FAERS Safety Report 20703883 (Version 1)
Quarter: 2022Q2

REPORT INFORMATION
  Report Type: Spontaneous
  Country: US (occurrence: US)
  Receive Date: 20220413
  Receipt Date: 20220413
  Transmission Date: 20220720
  Serious: No
  Sender: FDA-Public Use
  Company Number: US-GSKCCFUS-Case-01342351_AE-77890

PATIENT
  Sex: Female

DRUGS (1)
  1. SEREVENT DISKUS [Suspect]
     Active Substance: SALMETEROL XINAFOATE
     Indication: Product used for unknown indication
     Dosage: USES PRODUCT EVERY ONCE IN A WHILE

REACTIONS (3)
  - Dyspnoea [Unknown]
  - Expired product administered [Unknown]
  - Inappropriate schedule of product administration [Unknown]
